FAERS Safety Report 26047561 (Version 2)
Quarter: 2025Q4

REPORT INFORMATION
  Report Type: Spontaneous
  Country: TW (occurrence: TW)
  Receive Date: 20251114
  Receipt Date: 20251128
  Transmission Date: 20260118
  Serious: Yes (Other)
  Sender: AMGEN
  Company Number: TW-AMGEN-TWNSP2025224267

PATIENT

DRUGS (2)
  1. PROLIA [Suspect]
     Active Substance: DENOSUMAB
     Indication: Osteonecrosis
     Dosage: 60 MILLIGRAM
     Route: 065
  2. PROLIA [Suspect]
     Active Substance: DENOSUMAB
     Dosage: 60 MILLIGRAM
     Route: 065

REACTIONS (2)
  - Osteonecrosis [Unknown]
  - Off label use [Unknown]
